FAERS Safety Report 13517108 (Version 1)
Quarter: 2017Q2

REPORT INFORMATION
  Report Type: Spontaneous
  Country: US (occurrence: US)
  Receive Date: 20170504
  Receipt Date: 20170504
  Transmission Date: 20170830
  Serious: Yes (Hospitalization)
  Sender: FDA-Public Use
  Company Number: None

PATIENT
  Age: 52 Year
  Sex: Male

DRUGS (18)
  1. TRACLEER [Suspect]
     Active Substance: BOSENTAN
     Indication: HEART DISEASE CONGENITAL
     Route: 048
     Dates: start: 201412
  2. SENOKOT [Concomitant]
     Active Substance: SENNOSIDES
  3. POTASSIUM CHLORIDE. [Concomitant]
     Active Substance: POTASSIUM CHLORIDE
  4. ASACORBIC ACID [Concomitant]
  5. BUMEX [Concomitant]
     Active Substance: BUMETANIDE
  6. LEVOTHYROXINE. [Concomitant]
     Active Substance: LEVOTHYROXINE
  7. FLOLAN [Concomitant]
     Active Substance: EPOPROSTENOL SODIUM
  8. LAMICTAL [Concomitant]
     Active Substance: LAMOTRIGINE
  9. REVATIO [Concomitant]
     Active Substance: SILDENAFIL CITRATE
  10. AMIODARONE [Concomitant]
     Active Substance: AMIODARONE
  11. TYLENOL [Concomitant]
     Active Substance: ACETAMINOPHEN
  12. MORPHINE [Concomitant]
     Active Substance: MORPHINE
  13. TRACLEER [Suspect]
     Active Substance: BOSENTAN
     Indication: PULMONARY ARTERIAL HYPERTENSION
     Route: 048
     Dates: start: 201412
  14. TRACLEER [Suspect]
     Active Substance: BOSENTAN
     Indication: CONNECTIVE TISSUE DISORDER
     Route: 048
     Dates: start: 201412
  15. DOBUTAMINE [Concomitant]
     Active Substance: DOBUTAMINE\DOBUTAMINE HYDROCHLORIDE
  16. ZOFRAN [Concomitant]
     Active Substance: ONDANSETRON HYDROCHLORIDE
  17. NORCO [Concomitant]
     Active Substance: ACETAMINOPHEN\HYDROCODONE BITARTRATE
  18. COLACE [Concomitant]
     Active Substance: DOCUSATE SODIUM

REACTIONS (2)
  - Blood creatinine increased [None]
  - Fluid retention [None]

NARRATIVE: CASE EVENT DATE: 20170428
